FAERS Safety Report 4539615-9 (Version None)
Quarter: 2004Q4

REPORT INFORMATION
  Report Type: 
  Country: None (occurrence: None)
  Receive Date: 20041228
  Receipt Date: 20041222
  Transmission Date: 20050328
  Serious: Yes (Hospitalization)
  Sender: FDA-Public Use
  Company Number: PHBS2004CH17124

PATIENT
  Age: 70 Year
  Sex: Female

DRUGS (4)
  1. TIATRAL 100 SR [Suspect]
     Dosage: 100 MG/DAY
     Route: 048
     Dates: end: 20041201
  2. FOSAMAX [Concomitant]
     Dosage: 70 MG, QW
     Route: 048
     Dates: end: 20041201
  3. CALCIMAGON-D3 [Concomitant]
     Dosage: UNK, UNK
     Route: 048
     Dates: end: 20041201
  4. TARDYFERON [Concomitant]
     Dosage: UNK, UNK
     Route: 048
     Dates: end: 20041201

REACTIONS (7)
  - APHASIA [None]
  - CEREBRAL HAEMORRHAGE [None]
  - EXTENSOR PLANTAR RESPONSE [None]
  - HEADACHE [None]
  - HEMIPLEGIA [None]
  - NAUSEA [None]
  - SOMNOLENCE [None]
